FAERS Safety Report 6230344-2 (Version None)
Quarter: 2009Q2

REPORT INFORMATION
  Report Type: 
  Country: None (occurrence: None)
  Receive Date: 20090611
  Receipt Date: 20090604
  Transmission Date: 20091009
  Serious: Yes (Hospitalization)
  Sender: FDA-Public Use
  Company Number: DSA_33780_2009

PATIENT
  Sex: Male

DRUGS (2)
  1. XENAZINE [Suspect]
     Indication: TOURETTE'S DISORDER
     Dosage: 12.5 MG TID, DF
     Dates: start: 20090301, end: 20090301
  2. XENAZINE [Suspect]
     Indication: TOURETTE'S DISORDER
     Dosage: 12.5 MG TID, DF
     Dates: start: 20090301, end: 20090401

REACTIONS (1)
  - DYSTONIA [None]
